FAERS Safety Report 5202565-9 (Version None)
Quarter: 2007Q1

REPORT INFORMATION
  Report Type: 
  Country: None (occurrence: None)
  Receive Date: 20070109
  Receipt Date: 20070103
  Transmission Date: 20070707
  Serious: Yes (Death)
  Sender: FDA-Public Use
  Company Number: US-SANOFI-SYNTHELABO-A03200700096

PATIENT
  Sex: Female

DRUGS (6)
  1. LASIX [Concomitant]
     Dosage: UNK
     Route: 048
  2. SYNTHROID [Concomitant]
     Dosage: UNK
     Route: 048
  3. CADUET [Concomitant]
     Dosage: UNK
     Route: 048
  4. COREG [Concomitant]
     Dosage: UNK
     Route: 048
  5. COZAAR [Concomitant]
     Dosage: UNK
     Route: 048
  6. PLAVIX [Suspect]
     Indication: STENT PLACEMENT
     Dosage: UNK
     Route: 048

REACTIONS (1)
  - DEATH [None]
